FAERS Safety Report 7742209-5 (Version None)
Quarter: 2011Q3

REPORT INFORMATION
  Report Type: 
  Country: None (occurrence: None)
  Receive Date: 20110912
  Receipt Date: 20110831
  Transmission Date: 20111222
  Serious: Yes (Other)
  Sender: FDA-Public Use
  Company Number: US-BAYER-2011-080843

PATIENT
  Age: 23 Year
  Sex: Female

DRUGS (1)
  1. YAZ [Suspect]
     Dosage: UNK
     Dates: end: 20110501

REACTIONS (9)
  - IRRITABILITY [None]
  - GASTRIC DISORDER [None]
  - ABNORMAL BEHAVIOUR [None]
  - MOOD SWINGS [None]
  - NAUSEA [None]
  - PALPITATIONS [None]
  - DIZZINESS [None]
  - ANXIETY [None]
  - FATIGUE [None]
